FAERS Safety Report 21336230 (Version 1)
Quarter: 2022Q3

REPORT INFORMATION
  Report Type: Spontaneous
  Country: US (occurrence: None)
  Receive Date: 20220914
  Receipt Date: 20220914
  Transmission Date: 20221027
  Serious: Yes (Other)
  Sender: FDA-Public Use
  Company Number: None

PATIENT
  Sex: Female

DRUGS (9)
  1. HUMIRA [Suspect]
     Active Substance: ADALIMUMAB
  2. ASACOL HD [Concomitant]
     Active Substance: MESALAMINE
  3. ATORVASTATIN [Concomitant]
     Active Substance: ATORVASTATIN
  4. HYOSCYAMINE TAB [Concomitant]
  5. METOPROL TAR TAB [Concomitant]
  6. OMEPRAZOLE SODIUM [Concomitant]
     Active Substance: OMEPRAZOLE SODIUM
  7. TRADJENTA TAB [Concomitant]
  8. WELLBUTRIN TAB [Concomitant]
  9. XULTOPHY INJ [Concomitant]

REACTIONS (1)
  - Foot operation [None]
